FAERS Safety Report 8949739 (Version 2)
Quarter: 2016Q4

REPORT INFORMATION
  Report Type: Report from Study
  Country: US (occurrence: US)
  Receive Date: 20121206
  Receipt Date: 20161207
  Transmission Date: 20170207
  Serious: Yes (Death, Other)
  Sender: FDA-Public Use
  Company Number: US-ASTELLAS-2012US011900

PATIENT
  Age: 79 Year
  Sex: Male

DRUGS (2)
  1. ERLOTINIB [Suspect]
     Active Substance: ERLOTINIB
     Indication: LUNG NEOPLASM MALIGNANT
     Dosage: UNK UNK, UNKNOWN FREQ.
     Route: 065
     Dates: start: 20100824, end: 20101012
  2. FULVESTRANT [Suspect]
     Active Substance: FULVESTRANT
     Indication: LUNG NEOPLASM MALIGNANT
     Route: 065
     Dates: start: 20100824, end: 20101012

REACTIONS (1)
  - Lung neoplasm malignant [Fatal]
